FAERS Safety Report 9665320 (Version 1)
Quarter: 2013Q4

REPORT INFORMATION
  Report Type: Spontaneous
  Country: US (occurrence: US)
  Receive Date: 20131101
  Receipt Date: 20131101
  Transmission Date: 20140711
  Serious: No
  Sender: FDA-Public Use
  Company Number: US-ASTRAZENECA-2013SE77122

PATIENT
  Sex: Female

DRUGS (2)
  1. CRESTOR [Suspect]
     Route: 048
     Dates: end: 20131018
  2. SEVERAL UNSPECIFIED MEDICATIONS [Concomitant]

REACTIONS (5)
  - Menopause [Unknown]
  - Cognitive disorder [Unknown]
  - Speech disorder [Unknown]
  - Type 2 diabetes mellitus [Unknown]
  - Memory impairment [Unknown]
